FAERS Safety Report 20203860 (Version 1)
Quarter: 2021Q4

REPORT INFORMATION
  Report Type: Spontaneous
  Country: US (occurrence: US)
  Receive Date: 20211219
  Receipt Date: 20211219
  Transmission Date: 20220304
  Serious: Yes (Death, Other)
  Sender: FDA-Public Use
  Company Number: US-BIOVITRUM-2021US12185

PATIENT
  Age: 5 Month
  Sex: Female

DRUGS (1)
  1. SYNAGIS [Suspect]
     Active Substance: PALIVIZUMAB
     Indication: Coarctation of the aorta
     Route: 030
     Dates: start: 20211029, end: 20211207

REACTIONS (1)
  - Death [Fatal]

NARRATIVE: CASE EVENT DATE: 20211207
